FAERS Safety Report 22371905 (Version 1)
Quarter: 2023Q2

REPORT INFORMATION
  Report Type: Spontaneous
  Country: US (occurrence: None)
  Receive Date: 20230526
  Receipt Date: 20230526
  Transmission Date: 20230721
  Serious: Yes (Other)
  Sender: FDA-Public Use
  Company Number: 2023A121294

PATIENT
  Sex: Female
  Weight: 96.6 kg

DRUGS (11)
  1. LYNPARZA [Suspect]
     Active Substance: OLAPARIB
     Indication: Ovarian cancer
     Route: 048
  2. ZARXIO [Concomitant]
     Active Substance: FILGRASTIM-SNDZ
  3. AMOXICILLIN-CLAVULANAT [Concomitant]
  4. VARUBI [Concomitant]
     Active Substance: ROLAPITANT
  5. DEXAMETHASONE [Concomitant]
     Active Substance: DEXAMETHASONE
  6. RYBELSUS [Concomitant]
     Active Substance: SEMAGLUTIDE
  7. NEUPOGEN [Concomitant]
     Active Substance: FILGRASTIM
  8. JARDIANCE [Concomitant]
     Active Substance: EMPAGLIFLOZIN
  9. OMEPRAZOLE [Concomitant]
     Active Substance: OMEPRAZOLE
  10. NIVESTYM [Concomitant]
     Active Substance: FILGRASTIM-AAFI
  11. ZARXIO [Concomitant]
     Active Substance: FILGRASTIM-SNDZ

REACTIONS (2)
  - White blood cell count decreased [Unknown]
  - Neutrophil count decreased [Unknown]
